FAERS Safety Report 5595014-2 (Version None)
Quarter: 2007Q4

REPORT INFORMATION
  Report Type: 
  Country: None (occurrence: None)
  Receive Date: 20071218
  Receipt Date: 20070326
  Transmission Date: 20080405
  Serious: Yes (Hospitalization, Other)
  Sender: FDA-Public Use
  Company Number: 2007024695

PATIENT
  Age: 53 Year
  Sex: Male
  Weight: 163.3 kg

DRUGS (1)
  1. BEXTRA [Suspect]
     Indication: ARTHRALGIA
     Dosage: 10-20 MG (1 IN 1 D)
     Dates: start: 20020101

REACTIONS (2)
  - ANXIETY [None]
  - ATRIAL FIBRILLATION [None]
